FAERS Safety Report 4963361-0 (Version None)
Quarter: 2006Q2

REPORT INFORMATION
  Report Type: 
  Country: None (occurrence: None)
  Receive Date: 20060404
  Receipt Date: 20060404
  Transmission Date: 20061013
  Serious: Yes (Other)
  Sender: FDA-Public Use
  Company Number: None

PATIENT
  Age: 66 Year
  Sex: Male
  Weight: 63.5036 kg

DRUGS (1)
  1. VENLAFAXINE HCL [Suspect]
     Dosage: 150 MG PO QD
     Route: 048

REACTIONS (1)
  - LOSS OF CONSCIOUSNESS [None]
